FAERS Safety Report 6390595-3 (Version None)
Quarter: 2009Q4

REPORT INFORMATION
  Report Type: 
  Country: None (occurrence: None)
  Receive Date: 20091003
  Receipt Date: 20090924
  Transmission Date: 20100525
  Serious: Yes (Hospitalization)
  Sender: FDA-Public Use
  Company Number: 2009EU003569

PATIENT
  Age: 8 Year
  Sex: Male

DRUGS (2)
  1. TACROLIMUS [Suspect]
     Indication: DERMATITIS ATOPIC
     Dosage: 0.1% /D, TOPICAL
     Route: 061
     Dates: start: 20020301
  2. VALPROIC ACID [Concomitant]

REACTIONS (7)
  - CEREBRAL HAEMORRHAGE TRAUMATIC [None]
  - FALL [None]
  - HAEMATOMA [None]
  - HEAD INJURY [None]
  - LOSS OF CONSCIOUSNESS [None]
  - SKIN LESION [None]
  - VOMITING [None]
